FAERS Safety Report 15115084 (Version 1)
Quarter: 2018Q3

REPORT INFORMATION
  Report Type: Spontaneous
  Country: CN (occurrence: CN)
  Receive Date: 20180706
  Receipt Date: 20180706
  Transmission Date: 20181010
  Serious: Yes (Other)
  Sender: FDA-Public Use
  Company Number: CN-PFIZER INC-2018268432

PATIENT
  Age: 79 Year
  Sex: Male
  Weight: 60 kg

DRUGS (1)
  1. LIPITOR [Suspect]
     Active Substance: ATORVASTATIN CALCIUM
     Indication: CEREBRAL INFARCTION
     Dosage: 20 MG, 1X/AT NIGHT
     Route: 048
     Dates: start: 20180418, end: 20180427

REACTIONS (1)
  - Myocardial necrosis marker increased [Recovered/Resolved]

NARRATIVE: CASE EVENT DATE: 20180427
